FAERS Safety Report 6370245-2 (Version None)
Quarter: 2009Q3

REPORT INFORMATION
  Report Type: 
  Country: None (occurrence: None)
  Receive Date: 20090923
  Receipt Date: 20090909
  Transmission Date: 20100115
  Serious: Yes (Other)
  Sender: FDA-Public Use
  Company Number: JP-ROCHE-652249

PATIENT
  Sex: Male

DRUGS (11)
  1. PEGASYS [Suspect]
     Indication: HEPATITIS C
     Route: 058
     Dates: start: 20090228, end: 20090704
  2. NU-LOTAN [Concomitant]
     Dosage: DRUG NAME: NU-LOTAN (LOSARTAN POTASSIUM)
     Route: 048
  3. OMEPRAL [Concomitant]
     Dosage: FORM: ENTERIC
     Route: 048
  4. URSO 250 [Concomitant]
     Route: 048
  5. CALTAN [Concomitant]
     Dosage: DRUG NAME: CALTAN (PRECIPITATED CALCIUM CARBONATE)
     Route: 048
  6. CONIEL [Concomitant]
     Dosage: DRUG NAME: CONIEL (BENIDIPINE HYDROCHLORIDE)
     Route: 048
  7. TANATRIL [Concomitant]
     Dosage: DRUG NAME: TANATRIL (IMIDAPRIL HYDROCHLORIDE)
     Route: 048
  8. MYSLEE [Concomitant]
     Dosage: DRUG NAME: MYSLEE (ZOLPIDEM TARTRATE)
     Route: 048
  9. ZYLORIC [Concomitant]
     Route: 048
  10. CINAL [Concomitant]
     Dosage: DRUG NAME: CINAL (ASCORBIC ACID_CALCIUM PANTOTHENATE)
     Route: 048
  11. ALFAROL [Concomitant]
     Route: 048

REACTIONS (1)
  - TOLOSA-HUNT SYNDROME [None]
